FAERS Safety Report 7819585-8 (Version None)
Quarter: 2011Q4

REPORT INFORMATION
  Report Type: 
  Country: None (occurrence: None)
  Receive Date: 20111018
  Receipt Date: 20111018
  Transmission Date: 20120403
  Serious: No
  Sender: FDA-Public Use
  Company Number: None

PATIENT
  Age: 27 Year
  Sex: Female

DRUGS (1)
  1. FENTANYL [Suspect]
     Indication: PAIN
     Dosage: 50 MCG/HR
     Route: 062
     Dates: start: 20110913, end: 20111011

REACTIONS (4)
  - DRUG EFFECT DECREASED [None]
  - SOMNOLENCE [None]
  - BREAKTHROUGH PAIN [None]
  - DRUG EFFECT INCREASED [None]
